FAERS Safety Report 23564271 (Version 1)
Quarter: 2024Q1

REPORT INFORMATION
  Report Type: Report from Study
  Country: CA (occurrence: CA)
  Receive Date: 20240226
  Receipt Date: 20240226
  Transmission Date: 20240410
  Serious: Yes (Hospitalization, Other)
  Sender: FDA-Public Use
  Company Number: CA-GLAXOSMITHKLINE-CA2023153425

PATIENT

DRUGS (1)
  1. MEPOLIZUMAB [Suspect]
     Active Substance: MEPOLIZUMAB
     Indication: Asthma
     Dosage: 100 MG, Q4W
     Route: 058
     Dates: start: 20211230

REACTIONS (6)
  - Hospitalisation [Unknown]
  - Pericarditis [Unknown]
  - Pneumonia [Unknown]
  - Asthma [Unknown]
  - Migraine [Unknown]
  - Influenza [Unknown]

NARRATIVE: CASE EVENT DATE: 20231001
